FAERS Safety Report 10088853 (Version 1)
Quarter: 2014Q2

REPORT INFORMATION
  Report Type: Spontaneous
  Country: GB (occurrence: GB)
  Receive Date: 20140421
  Receipt Date: 20140421
  Transmission Date: 20141212
  Serious: Yes (Hospitalization)
  Sender: FDA-Public Use
  Company Number: GB-JNJFOC-20140407412

PATIENT
  Age: 28 Year
  Sex: 0

DRUGS (11)
  1. ITRACONAZOLE [Suspect]
     Indication: NEUTROPENIC SEPSIS
     Dosage: 50 MG/5 ML
     Route: 065
     Dates: start: 20120419, end: 20120428
  2. AMBISOME [Suspect]
     Indication: PRODUCT USED FOR UNKNOWN INDICATION
     Dosage: IN VIALS
     Route: 065
     Dates: start: 20120428, end: 20120523
  3. CIPROFLOXACIN [Suspect]
     Indication: NEUTROPENIC SEPSIS
     Route: 065
     Dates: start: 20120419, end: 20120503
  4. CIPROFLOXACIN [Suspect]
     Indication: NEUTROPENIC SEPSIS
     Route: 065
     Dates: start: 20120514, end: 20120521
  5. CO-AMOXICLAV [Suspect]
     Indication: PRODUCT USED FOR UNKNOWN INDICATION
     Route: 065
     Dates: start: 20120523, end: 20120530
  6. GENTAMICIN [Suspect]
     Indication: PRODUCT USED FOR UNKNOWN INDICATION
     Dosage: STAT. DOSE 80 MG/ 2 ML
     Route: 065
     Dates: start: 20120523
  7. MEROPENEM [Suspect]
     Indication: NEUTROPENIC SEPSIS
     Route: 065
     Dates: start: 20120506, end: 20120514
  8. PENTAMIDINE [Suspect]
     Indication: PRODUCT USED FOR UNKNOWN INDICATION
     Dosage: STAT DOSE 300 MG/ 5 ML
     Route: 065
     Dates: start: 20120503
  9. TAZOCIN [Suspect]
     Indication: PRODUCT USED FOR UNKNOWN INDICATION
     Dosage: VIAL
     Route: 065
     Dates: start: 20120503, end: 20120506
  10. PANTOPRAZOLE [Concomitant]
     Indication: PRODUCT USED FOR UNKNOWN INDICATION
     Route: 042
  11. LANSOPRAZOLE [Concomitant]
     Indication: PRODUCT USED FOR UNKNOWN INDICATION
     Route: 065

REACTIONS (1)
  - Clostridium difficile infection [Unknown]
